FAERS Safety Report 12497882 (Version 2)
Quarter: 2016Q3

REPORT INFORMATION
  Report Type: Spontaneous
  Country: GB (occurrence: GB)
  Receive Date: 20160625
  Receipt Date: 20160711
  Transmission Date: 20161109
  Serious: Yes (Other)
  Sender: FDA-Public Use
  Company Number: GB-APOTEX-2016AP009438

PATIENT
  Age: 37 Year
  Sex: Male

DRUGS (17)
  1. PAXIL [Suspect]
     Active Substance: PAROXETINE HYDROCHLORIDE
     Dosage: 20 MG, UNKNOWN
     Route: 048
     Dates: start: 19990701
  2. PAXIL [Suspect]
     Active Substance: PAROXETINE HYDROCHLORIDE
     Dosage: UNK
     Route: 048
     Dates: start: 19940926
  3. PAXIL [Suspect]
     Active Substance: PAROXETINE HYDROCHLORIDE
     Dosage: 20 MG, UNKNOWN
     Route: 048
     Dates: start: 20000124
  4. PAROXETINE. [Suspect]
     Active Substance: PAROXETINE
     Dosage: UNK
     Route: 065
     Dates: end: 20020815
  5. PAXIL [Suspect]
     Active Substance: PAROXETINE HYDROCHLORIDE
     Indication: DEPRESSION
     Dosage: UNK
     Dates: start: 1990
  6. PAXIL [Suspect]
     Active Substance: PAROXETINE HYDROCHLORIDE
     Dosage: 40 MG, UNKNOWN
     Route: 048
     Dates: start: 20000216
  7. PAROXETINE. [Suspect]
     Active Substance: PAROXETINE
     Indication: DEPRESSION
     Dosage: 25 MG, DAILY
     Route: 065
  8. PAXIL [Suspect]
     Active Substance: PAROXETINE HYDROCHLORIDE
     Dosage: 40 MG, UNKNOWN
     Route: 048
     Dates: start: 20011122
  9. COCODAMOL [Concomitant]
     Active Substance: ACETAMINOPHEN\CODEINE PHOSPHATE
     Indication: HEADACHE
     Dosage: UNK
     Route: 065
     Dates: start: 200404
  10. PAROXETINE. [Suspect]
     Active Substance: PAROXETINE
     Dosage: 40 MG, QD
     Route: 065
  11. PAXIL [Suspect]
     Active Substance: PAROXETINE HYDROCHLORIDE
     Dosage: WEANED OFF
     Route: 048
     Dates: end: 19980716
  12. DICLOFENAC [Concomitant]
     Active Substance: DICLOFENAC
     Indication: BACK PAIN
     Dosage: 25 MG, TID
     Route: 065
     Dates: start: 200407
  13. INDERAL [Concomitant]
     Active Substance: PROPRANOLOL HYDROCHLORIDE
     Indication: ANXIETY
     Dosage: UNK
     Route: 065
  14. PAROXETINE. [Suspect]
     Active Substance: PAROXETINE
     Dosage: 40 MG, QD
     Route: 065
     Dates: start: 2001
  15. PAXIL [Suspect]
     Active Substance: PAROXETINE HYDROCHLORIDE
     Dosage: 30 MG, UNKNOWN
     Route: 048
     Dates: start: 19990913
  16. PAXIL [Suspect]
     Active Substance: PAROXETINE HYDROCHLORIDE
     Dosage: UNK
     Route: 065
     Dates: end: 200208
  17. INDERAL [Concomitant]
     Active Substance: PROPRANOLOL HYDROCHLORIDE
     Indication: MIGRAINE
     Dosage: 0.5 DF, QD (HALF TABLET 80 MG)
     Route: 065
     Dates: start: 200504

REACTIONS (29)
  - Feeling hot [Unknown]
  - Anxiety [Unknown]
  - Cold sweat [Unknown]
  - Dizziness [Unknown]
  - Paraesthesia [Unknown]
  - Weight decreased [Unknown]
  - Arthralgia [Unknown]
  - Depression [Unknown]
  - Confusional state [Unknown]
  - Metamorphopsia [Unknown]
  - Myalgia [Unknown]
  - Fall [Unknown]
  - Musculoskeletal stiffness [Unknown]
  - Headache [Unknown]
  - Sensory disturbance [Unknown]
  - Hyperhidrosis [Unknown]
  - Drug withdrawal syndrome [Unknown]
  - Fatigue [Unknown]
  - Depressed mood [Unknown]
  - Amnesia [Unknown]
  - Nausea [Unknown]
  - Vision blurred [Unknown]
  - Balance disorder [Unknown]
  - Loss of consciousness [Unknown]
  - Mouth ulceration [Unknown]
  - Sleep disorder [Unknown]
  - Suicidal ideation [Unknown]
  - Anger [Unknown]
  - Balance disorder [Unknown]

NARRATIVE: CASE EVENT DATE: 2001
